FAERS Safety Report 16831911 (Version 3)
Quarter: 2019Q4

REPORT INFORMATION
  Report Type: Spontaneous
  Country: FR (occurrence: FR)
  Receive Date: 20190920
  Receipt Date: 20191114
  Transmission Date: 20200122
  Serious: Yes (Other)
  Sender: FDA-Public Use
  Company Number: FR-BAYER-2019-171147

PATIENT
  Age: 47 Year
  Sex: Female

DRUGS (1)
  1. MIRENA [Suspect]
     Active Substance: LEVONORGESTREL
     Indication: CONTRACEPTION
     Dosage: 20 MCG/24HR, CONT
     Route: 015
     Dates: start: 201802, end: 201901

REACTIONS (3)
  - Meningioma [Recovered/Resolved with Sequelae]
  - Malaise [Not Recovered/Not Resolved]
  - Endocrine disorder [None]

NARRATIVE: CASE EVENT DATE: 201901
